FAERS Safety Report 4778375-3 (Version None)
Quarter: 2005Q3

REPORT INFORMATION
  Report Type: 
  Country: None (occurrence: None)
  Receive Date: 20050926
  Receipt Date: 20050922
  Transmission Date: 20060218
  Serious: Yes (Other)
  Sender: FDA-Public Use
  Company Number: US-GLAXOSMITHKLINE-A0575437A

PATIENT
  Age: 57 Year
  Sex: Female

DRUGS (3)
  1. COREG [Suspect]
     Indication: HYPERTENSION
     Route: 048
     Dates: start: 20050601
  2. DIOVAN [Concomitant]
  3. ACTOS [Concomitant]

REACTIONS (2)
  - HYPERTENSION [None]
  - HYPOTENSION [None]
